FAERS Safety Report 20991805 (Version 1)
Quarter: 2022Q2

REPORT INFORMATION
  Report Type: Spontaneous
  Country: US (occurrence: None)
  Receive Date: 20220621
  Receipt Date: 20220621
  Transmission Date: 20220721
  Serious: Yes (Hospitalization)
  Sender: FDA-Public Use
  Company Number: None

PATIENT
  Age: 51 Year
  Sex: Female

DRUGS (1)
  1. DALFAMPRIDINE [Suspect]
     Active Substance: DALFAMPRIDINE
     Dosage: 10MG BID ORAL?
     Route: 048
     Dates: start: 202010

REACTIONS (2)
  - Abscess [None]
  - Large intestine perforation [None]

NARRATIVE: CASE EVENT DATE: 20220526
